FAERS Safety Report 8231085-2 (Version None)
Quarter: 2012Q1

REPORT INFORMATION
  Report Type: 
  Country: None (occurrence: None)
  Receive Date: 20120322
  Receipt Date: 20120322
  Transmission Date: 20120608
  Serious: No
  Sender: FDA-Public Use
  Company Number: None

PATIENT
  Age: 51 Year
  Sex: Female
  Weight: 102.27 kg

DRUGS (3)
  1. TOPIRAMATE [Concomitant]
     Indication: AFFECTIVE DISORDER
     Dosage: 150MG
     Route: 048
     Dates: start: 20111111, end: 20120215
  2. DIVALPROEX SODIUM [Suspect]
     Indication: AGGRESSION
     Dosage: 1250MG
     Route: 048
     Dates: start: 20100204, end: 20120321
  3. DIVALPROEX SODIUM [Suspect]
     Indication: MOOD SWINGS
     Dosage: 1250MG
     Route: 048
     Dates: start: 20100204, end: 20120321

REACTIONS (1)
  - HEPATIC ENZYME INCREASED [None]
